FAERS Safety Report 20998886 (Version 1)
Quarter: 2022Q2

REPORT INFORMATION
  Report Type: Spontaneous
  Country: US (occurrence: None)
  Receive Date: 20220623
  Receipt Date: 20220623
  Transmission Date: 20220721
  Serious: No
  Sender: FDA-Public Use
  Company Number: US-IPSEN BIOSCIENCE, INC.-MER-2017-000206

PATIENT
  Age: 58 Year
  Sex: Male

DRUGS (3)
  1. ONIVYDE [Suspect]
     Active Substance: IRINOTECAN HYDROCHLORIDE
     Indication: Pancreatic carcinoma metastatic
     Dosage: UNK, 11 MONTHS, 18 CYCLES
     Route: 042
     Dates: start: 201609
  2. FLUOROURACIL [Concomitant]
     Active Substance: FLUOROURACIL
     Indication: Pancreatic carcinoma metastatic
     Dosage: UNK
     Route: 065
  3. LEUCOVORIN                         /00566701/ [Concomitant]
     Indication: Pancreatic carcinoma metastatic
     Dosage: UNK
     Route: 065

REACTIONS (2)
  - Fatigue [Unknown]
  - Diarrhoea [Unknown]
